FAERS Safety Report 18158149 (Version 1)
Quarter: 2020Q3

REPORT INFORMATION
  Report Type: Spontaneous
  Country: NO (occurrence: NO)
  Receive Date: 20200817
  Receipt Date: 20200817
  Transmission Date: 20201103
  Serious: Yes (Disabling)
  Sender: FDA-Public Use
  Company Number: NO-BRISTOL-MYERS SQUIBB COMPANY-BMS-2020-062674

PATIENT
  Age: 57 Year
  Sex: Male

DRUGS (3)
  1. KENACORT [Suspect]
     Active Substance: TRIAMCINOLONE
     Indication: ROTATOR CUFF SYNDROME
     Dosage: 1 DOSAGE FORM
     Route: 065
     Dates: start: 20181003, end: 20181003
  2. ARCOXIA [Concomitant]
     Active Substance: ETORICOXIB
     Indication: ROTATOR CUFF SYNDROME
     Dosage: 90 MILLIGRAM, QD (1 TABLET PER DAY)
     Route: 048
     Dates: start: 20180918, end: 20181003
  3. XYLOCAIN [LIDOCAINE] [Suspect]
     Active Substance: LIDOCAINE
     Indication: ROTATOR CUFF SYNDROME
     Dosage: 0.5 MILLILITER
     Route: 051
     Dates: start: 20181003, end: 20181003

REACTIONS (4)
  - Urticaria chronic [Not Recovered/Not Resolved]
  - Pyrexia [Recovered/Resolved with Sequelae]
  - Myalgia [Recovered/Resolved with Sequelae]
  - Influenza like illness [Recovered/Resolved with Sequelae]

NARRATIVE: CASE EVENT DATE: 20181003
